FAERS Safety Report 23729441 (Version 6)
Quarter: 2024Q4

REPORT INFORMATION
  Report Type: Spontaneous
  Country: JP (occurrence: JP)
  Receive Date: 20240410
  Receipt Date: 20241206
  Transmission Date: 20250115
  Serious: Yes (Death, Hospitalization, Disabling, Other)
  Sender: MERCK
  Company Number: JP-MSD-M2023-52402

PATIENT
  Age: 70 Year
  Sex: Female
  Weight: 61 kg

DRUGS (5)
  1. KEYTRUDA [Suspect]
     Active Substance: PEMBROLIZUMAB
     Indication: Transitional cell cancer of the renal pelvis and ureter
     Dosage: 200 MILLIGRAM, Q3W
     Route: 041
     Dates: start: 20230831, end: 20231107
  2. VONOPRAZAN FUMARATE [Concomitant]
     Active Substance: VONOPRAZAN FUMARATE
     Dosage: UNK
     Route: 065
  3. HERBESSER [Concomitant]
     Active Substance: DILTIAZEM HYDROCHLORIDE
     Dosage: UNK
     Route: 065
  4. LOXOPROFEN SODIUM [Concomitant]
     Active Substance: LOXOPROFEN SODIUM
     Dosage: UNK
     Route: 065
  5. CALONAL [Concomitant]
     Active Substance: ACETAMINOPHEN
     Dosage: UNK
     Route: 065

REACTIONS (1)
  - Immune-mediated encephalitis [Fatal]

NARRATIVE: CASE EVENT DATE: 20231124
